FAERS Safety Report 5044226-5 (Version None)
Quarter: 2006Q3

REPORT INFORMATION
  Report Type: 
  Country: None (occurrence: None)
  Receive Date: 20060706
  Receipt Date: 20060628
  Transmission Date: 20061208
  Serious: Yes (Hospitalization)
  Sender: FDA-Public Use
  Company Number: BE-ROCHE-453390

PATIENT
  Age: 37 Year
  Sex: Female
  Weight: 52 kg

DRUGS (2)
  1. PEGASYS [Suspect]
     Route: 058
     Dates: start: 20060324, end: 20060617
  2. COPEGUS [Suspect]
     Dosage: DOSAGE REGIMEN REPORTED AS 4/DAY.
     Route: 048
     Dates: start: 20060324, end: 20060619

REACTIONS (1)
  - PULMONARY FIBROSIS [None]
